FAERS Safety Report 23242255 (Version 2)
Quarter: 2023Q4

REPORT INFORMATION
  Report Type: Spontaneous
  Country: FR (occurrence: FR)
  Receive Date: 20231129
  Receipt Date: 20231211
  Transmission Date: 20240110
  Serious: Yes (Hospitalization, Other)
  Sender: FDA-Public Use
  Company Number: None

PATIENT
  Age: 18 Year
  Sex: Male
  Weight: 62 kg

DRUGS (11)
  1. PREDNISONE [Suspect]
     Active Substance: PREDNISONE
     Indication: B-cell lymphoma
     Dosage: C2
     Route: 048
     Dates: start: 20230926, end: 20231012
  2. PREDNISONE [Suspect]
     Active Substance: PREDNISONE
     Indication: Primary mediastinal large B-cell lymphoma
     Dosage: POSOLOGY NOT REPORTED C1 26/09/2023 C2 12/10/2023
     Route: 048
     Dates: start: 20231012
  3. DOXORUBICIN HYDROCHLORIDE [Suspect]
     Active Substance: DOXORUBICIN HYDROCHLORIDE
     Indication: B-cell lymphoma
     Dosage: C2
     Route: 042
     Dates: start: 20230926, end: 20231012
  4. DOXORUBICIN HYDROCHLORIDE [Suspect]
     Active Substance: DOXORUBICIN HYDROCHLORIDE
     Indication: Primary mediastinal large B-cell lymphoma
     Dosage: POSOLOGY NOT REPORTED C1 26/09/2023 C2 12/10/2023
     Route: 042
     Dates: start: 20231012
  5. VINCRISTINE SULFATE [Suspect]
     Active Substance: VINCRISTINE SULFATE
     Indication: B-cell lymphoma
     Dosage: C2
     Route: 042
     Dates: start: 20230926, end: 20231012
  6. VINCRISTINE SULFATE [Suspect]
     Active Substance: VINCRISTINE SULFATE
     Indication: Primary mediastinal large B-cell lymphoma
     Dosage: POSOLOGY NOT REPORTED C1 26/09/2023 C2 12/10/2023
     Route: 042
     Dates: start: 20231012
  7. BACTRIM [Suspect]
     Active Substance: SULFAMETHOXAZOLE\TRIMETHOPRIM
     Indication: Prophylaxis
     Dosage: 1 DOSAGE FORM, Q2D
     Route: 048
     Dates: start: 20230926, end: 20231013
  8. RITUXIMAB [Suspect]
     Active Substance: RITUXIMAB
     Indication: B-cell lymphoma
     Dosage: C2
     Route: 042
     Dates: start: 20230926, end: 20231012
  9. RITUXIMAB [Suspect]
     Active Substance: RITUXIMAB
     Indication: Primary mediastinal large B-cell lymphoma
     Dosage: POSOLOGY NOT REPORTED C1 26/09/2023 C2 12/10/2023
     Route: 042
     Dates: start: 20231012
  10. CYCLOPHOSPHAMIDE [Suspect]
     Active Substance: CYCLOPHOSPHAMIDE
     Indication: B-cell lymphoma
     Dosage: POSOLOGY NOT REPORTED C1 26/09/2023 C2 12/10/2023
     Route: 042
     Dates: start: 20230926, end: 20231012
  11. CYCLOPHOSPHAMIDE [Suspect]
     Active Substance: CYCLOPHOSPHAMIDE
     Indication: Primary mediastinal large B-cell lymphoma
     Dosage: POSOLOGY NOT REPORTED C1 26/09/2023 C2 12/10/2023
     Route: 042
     Dates: start: 20231012

REACTIONS (5)
  - Pancreatitis acute [Recovered/Resolved]
  - Hepatic cytolysis [Unknown]
  - Headache [Unknown]
  - Hyperleukocytosis [Unknown]
  - Enterocolitis viral [Unknown]

NARRATIVE: CASE EVENT DATE: 20230927
